FAERS Safety Report 17270682 (Version 1)
Quarter: 2020Q1

REPORT INFORMATION
  Report Type: Spontaneous
  Country: US (occurrence: US)
  Receive Date: 20200114
  Receipt Date: 20200114
  Transmission Date: 20200409
  Serious: No
  Sender: FDA-Public Use
  Company Number: US-009507513-2001USA003687

PATIENT
  Age: 24 Year
  Sex: Female
  Weight: 87.98 kg

DRUGS (2)
  1. NUVARING [Suspect]
     Active Substance: ETHINYL ESTRADIOL\ETONOGESTREL
     Dosage: 1 RING FOR 3 WEEKS
     Route: 067
     Dates: start: 20200103
  2. NUVARING [Suspect]
     Active Substance: ETHINYL ESTRADIOL\ETONOGESTREL
     Indication: CONTRACEPTION
     Dosage: 1 RING FOR 3 WEEKS
     Route: 067
     Dates: end: 20191226

REACTIONS (3)
  - Pain [Recovered/Resolved]
  - Withdrawal bleed [Unknown]
  - Device breakage [Unknown]

NARRATIVE: CASE EVENT DATE: 20191219
